FAERS Safety Report 8174168-8 (Version None)
Quarter: 2012Q1

REPORT INFORMATION
  Report Type: 
  Country: None (occurrence: None)
  Receive Date: 20120229
  Receipt Date: 20120131
  Transmission Date: 20120608
  Serious: Yes (Other)
  Sender: FDA-Public Use
  Company Number: FR-ROCHE-1025234

PATIENT
  Age: 56 Year
  Sex: Male

DRUGS (1)
  1. MIRCERA [Suspect]
     Indication: RENAL FAILURE CHRONIC

REACTIONS (1)
  - ADVERSE EVENT [None]
